FAERS Safety Report 16795292 (Version 6)
Quarter: 2019Q4

REPORT INFORMATION
  Report Type: Report from Study
  Country: None (occurrence: TR)
  Receive Date: 20190911
  Receipt Date: 20191114
  Transmission Date: 20200122
  Serious: Yes (Death, Hospitalization, Other)
  Sender: FDA-Public Use
  Company Number: TR-ABBVIE-19K-161-2918636-00

PATIENT
  Age: 64 Year
  Sex: Male
  Weight: 50 kg

DRUGS (2)
  1. DUODOPA [Suspect]
     Active Substance: CARBIDOPA\LEVODOPA
     Indication: PARKINSON^S DISEASE
     Dosage: MORNING DOSE (ML): 4.40 CONTINUOUS DOSE (ML): 3.00 EXTRA DOSE (ML): 1.00
     Route: 050
     Dates: start: 20190903, end: 20190908
  2. DUODOPA [Suspect]
     Active Substance: CARBIDOPA\LEVODOPA
     Dosage: MORNING DOSE (ML): 3.00 CONTINUOUS DOSE (ML): 2.00 EXTRA DOSE(ML): 1.00
     Route: 050
     Dates: start: 20190917, end: 20190930

REACTIONS (8)
  - Respiratory distress [Not Recovered/Not Resolved]
  - Acute kidney injury [Fatal]
  - Urine output decreased [Recovered/Resolved]
  - Ileus [Not Recovered/Not Resolved]
  - Post procedural fistula [Not Recovered/Not Resolved]
  - Blood creatinine increased [Recovered/Resolved]
  - Generalised oedema [Not Recovered/Not Resolved]
  - Dehydration [Not Recovered/Not Resolved]

NARRATIVE: CASE EVENT DATE: 20190907
